FAERS Safety Report 5104925-3 (Version None)
Quarter: 2006Q3

REPORT INFORMATION
  Report Type: 
  Country: None (occurrence: None)
  Receive Date: 20060911
  Receipt Date: 20060911
  Transmission Date: 20061208
  Serious: Yes (Hospitalization)
  Sender: FDA-Public Use
  Company Number: None

PATIENT
  Age: 23 Year
  Sex: Male
  Weight: 64.7 kg

DRUGS (2)
  1. VITAMIN B COMPLEX CAP [Suspect]
     Indication: MEDICAL DIET
     Dosage: 1 CAPSULE 1
     Dates: start: 20060706, end: 20060706
  2. GINSENG AND ROYAL JELLY ? NOW [Suspect]
     Indication: MEDICAL DIET
     Dosage: 1 CAPSULE 1
     Dates: start: 20060706, end: 20060706

REACTIONS (4)
  - ABDOMINAL INFECTION [None]
  - ABDOMINAL PAIN UPPER [None]
  - GASTRIC INFECTION [None]
  - WEIGHT DECREASED [None]
